FAERS Safety Report 9445511 (Version 1)
Quarter: 2013Q3

REPORT INFORMATION
  Report Type: Spontaneous
  Country: US (occurrence: US)
  Receive Date: 20130807
  Receipt Date: 20130807
  Transmission Date: 20140515
  Serious: No
  Sender: FDA-Public Use
  Company Number: US-009507513-1308USA003044

PATIENT
  Age: 8 Year
  Sex: Male

DRUGS (1)
  1. DR. SCHOLL^S FREEZE AWAY DUAL ACTION COMMON + PLANTAR WART REMOVER [Suspect]
     Indication: SKIN PAPILLOMA
     Dosage: UNK, QD
     Route: 061

REACTIONS (3)
  - Application site pain [Not Recovered/Not Resolved]
  - Discomfort [Unknown]
  - Device misuse [Unknown]
